FAERS Safety Report 4407666-0 (Version None)
Quarter: 2004Q3

REPORT INFORMATION
  Report Type: 
  Country: None (occurrence: None)
  Receive Date: 20040721
  Receipt Date: 20040712
  Transmission Date: 20050211
  Serious: Yes (Hospitalization, Other)
  Sender: FDA-Public Use
  Company Number: 2003-07-3413

PATIENT
  Age: 54 Year
  Sex: Male

DRUGS (12)
  1. RIBAVIRIN [Suspect]
     Indication: SEVERE ACUTE RESPIRATORY SYNDROME
     Dosage: 1200 MG BID ORAL
     Route: 048
  2. VIRAZOLE [Suspect]
     Indication: SEVERE ACUTE RESPIRATORY SYNDROME
     Dosage: SEE IMAGE
     Route: 042
     Dates: start: 20030101, end: 20030101
  3. AMILORIDE/HYDRLOCHLOROTHIAZIDE [Concomitant]
  4. ASPIRIN [Concomitant]
  5. AZITHROMYCIN [Concomitant]
  6. COMBIVENT [Concomitant]
  7. FENOFIBRATE [Concomitant]
  8. HEPARIN [Concomitant]
  9. INSULIN [Concomitant]
  10. METFORMIN HCL [Concomitant]
  11. METHYLPREDNISOLONE [Concomitant]
  12. TEVETEN [Concomitant]

REACTIONS (4)
  - BLOOD BILIRUBIN INCREASED [None]
  - HAEMOLYTIC ANAEMIA [None]
  - HYPOCALCAEMIA [None]
  - HYPOMAGNESAEMIA [None]
